APPROVED DRUG PRODUCT: SPECTAZOLE
Active Ingredient: ECONAZOLE NITRATE
Strength: 1% **Federal Register determination that product was not discontinued or withdrawn for safety or effectiveness reasons**
Dosage Form/Route: CREAM;TOPICAL
Application: N018751 | Product #001
Applicant: ALVOGEN INC
Approved: Dec 23, 1982 | RLD: Yes | RS: No | Type: DISCN